FAERS Safety Report 11722628 (Version 3)
Quarter: 2015Q4

REPORT INFORMATION
  Report Type: Spontaneous
  Country: US (occurrence: US)
  Receive Date: 20151111
  Receipt Date: 20151228
  Transmission Date: 20160304
  Serious: Yes (Other)
  Sender: FDA-Public Use
  Company Number: US-PFIZER INC-2015370719

PATIENT
  Age: 46 Year
  Sex: Male
  Weight: 86 kg

DRUGS (5)
  1. NOVOLIN [Concomitant]
     Active Substance: INSULIN HUMAN
  2. LYRICA [Suspect]
     Active Substance: PREGABALIN
     Indication: DIABETIC NEUROPATHY
     Dosage: 225 MG, 2X/DAY
     Dates: start: 2010, end: 201510
  3. LANTUS [Concomitant]
     Active Substance: INSULIN GLARGINE
  4. NOVOLOG [Concomitant]
     Active Substance: INSULIN ASPART
  5. LYRICA [Suspect]
     Active Substance: PREGABALIN
     Dosage: 50 MG, 2X/DAY
     Dates: start: 201510

REACTIONS (10)
  - Insomnia [Unknown]
  - Condition aggravated [Not Recovered/Not Resolved]
  - Anxiety [Unknown]
  - Drug ineffective [Unknown]
  - Burning sensation [Unknown]
  - Liver disorder [Unknown]
  - Neuropathy peripheral [Not Recovered/Not Resolved]
  - Hyperhidrosis [Unknown]
  - Renal disorder [Unknown]
  - Headache [Unknown]

NARRATIVE: CASE EVENT DATE: 2015
